FAERS Safety Report 14023518 (Version 1)
Quarter: 2017Q3

REPORT INFORMATION
  Report Type: Spontaneous
  Country: US (occurrence: US)
  Receive Date: 20170929
  Receipt Date: 20170929
  Transmission Date: 20171128
  Serious: Yes (Hospitalization, Other)
  Sender: FDA-Public Use
  Company Number: US-BAYER-2017-179609

PATIENT
  Age: 77 Year
  Sex: Male
  Weight: 52.58 kg

DRUGS (12)
  1. DIFLUCAN [Concomitant]
     Active Substance: FLUCONAZOLE
     Indication: ANTI-INFECTIVE THERAPY
     Dosage: UNK
     Dates: start: 20170630
  2. LEVAQUIN [Concomitant]
     Active Substance: LEVOFLOXACIN
     Indication: ANTI-INFECTIVE THERAPY
     Dosage: UNK
     Dates: start: 20170702
  3. HYDREA [Suspect]
     Active Substance: HYDROXYUREA
     Indication: NEOPLASM
     Dosage: 2000 MG, QD
     Route: 048
     Dates: start: 20170817, end: 20170819
  4. GEMTUZUMAB OZOGAMICIN [Concomitant]
     Active Substance: GEMTUZUMAB OZOGAMICIN
     Indication: ACUTE MYELOID LEUKAEMIA
     Dosage: UNK
     Dates: start: 20170730
  5. ZOVIRAX [Concomitant]
     Active Substance: ACYCLOVIR
     Indication: FUNGAL INFECTION
     Dosage: UNK
     Dates: start: 20170630
  6. ZYLOPRIM [Concomitant]
     Active Substance: ALLOPURINOL
     Indication: BLOOD URIC ACID ABNORMAL
     Dosage: UNK
     Dates: start: 20170630
  7. COLACE [Concomitant]
     Active Substance: DOCUSATE SODIUM
     Indication: CONSTIPATION
     Dosage: UNK
     Dates: start: 20170630
  8. PROTONIX [Concomitant]
     Active Substance: PANTOPRAZOLE SODIUM
     Indication: GASTRIC PH DECREASED
     Dosage: UNK
     Dates: start: 20170714
  9. SORAFENIB (RAF KINASE INHIBITOR) [Suspect]
     Active Substance: SORAFENIB
     Indication: NEOPLASM
     Dosage: 400 MG, BID
     Route: 048
     Dates: start: 20170817, end: 20170819
  10. GEMTUZUMAB OZOGAMICIN [Concomitant]
     Active Substance: GEMTUZUMAB OZOGAMICIN
     Indication: ACUTE MYELOID LEUKAEMIA
     Dosage: UNK
     Dates: start: 20170727
  11. GEMTUZUMAB OZOGAMICIN [Concomitant]
     Active Substance: GEMTUZUMAB OZOGAMICIN
     Indication: ACUTE MYELOID LEUKAEMIA
     Dosage: 5.0 MG, QD
     Route: 042
     Dates: start: 20170802, end: 20170802
  12. FLEXERIL [Concomitant]
     Active Substance: CYCLOBENZAPRINE HYDROCHLORIDE
     Indication: MUSCLE SPASMS
     Dosage: UNK
     Dates: start: 20170630

REACTIONS (4)
  - Melaena [Recovered/Resolved]
  - Thrombocytopenia [Recovering/Resolving]
  - Epistaxis [Recovered/Resolved]
  - Faeces discoloured [Recovered/Resolved]

NARRATIVE: CASE EVENT DATE: 2017
